FAERS Safety Report 18693501 (Version 1)
Quarter: 2021Q1

REPORT INFORMATION
  Report Type: Spontaneous
  Country: SE (occurrence: SE)
  Receive Date: 20210104
  Receipt Date: 20210104
  Transmission Date: 20210419
  Serious: Yes (Other)
  Sender: FDA-Public Use
  Company Number: SE-BIOGEN-2020BI00963090

PATIENT
  Age: 48 Year

DRUGS (3)
  1. TECFIDERA [Suspect]
     Active Substance: DIMETHYL FUMARATE
     Route: 065
     Dates: start: 20130415
  2. RITUXIMAB. [Suspect]
     Active Substance: RITUXIMAB
     Indication: PRODUCT USED FOR UNKNOWN INDICATION
     Route: 065
     Dates: start: 202003
  3. TECFIDERA [Suspect]
     Active Substance: DIMETHYL FUMARATE
     Indication: PRODUCT USED FOR UNKNOWN INDICATION
     Route: 065

REACTIONS (10)
  - Pain [Unknown]
  - Rash erythematous [Unknown]
  - Rash pruritic [Unknown]
  - Pruritus [Unknown]
  - B-lymphocyte count decreased [Unknown]
  - Flushing [Unknown]
  - Abdominal pain upper [Unknown]
  - Lymphopenia [Unknown]
  - Multiple sclerosis [Unknown]
  - Gastritis [Unknown]

NARRATIVE: CASE EVENT DATE: 20130415
